FAERS Safety Report 14819276 (Version 1)
Quarter: 2018Q2

REPORT INFORMATION
  Report Type: Spontaneous
  Country: DE (occurrence: DE)
  Receive Date: 20180427
  Receipt Date: 20180427
  Transmission Date: 20180711
  Serious: Yes (Hospitalization)
  Sender: FDA-Public Use
  Company Number: DE-BAYER-2018-073705

PATIENT
  Age: 85 Year
  Sex: Female

DRUGS (8)
  1. GLIMEPIRIDE. [Suspect]
     Active Substance: GLIMEPIRIDE
     Dosage: 3 MG, BID
  2. METFORMIN [Suspect]
     Active Substance: METFORMIN HYDROCHLORIDE
     Dosage: DAILY DOSE 1525 MG
  3. INUVAIR [Concomitant]
     Active Substance: BECLOMETHASONE DIPROPIONATE\FORMOTEROL FUMARATE
  4. RAMIPRIL [HYDROCHLOROTHIAZIDE,RAMIPRIL] [Concomitant]
     Active Substance: HYDROCHLOROTHIAZIDE\RAMIPRIL
  5. AMLODIPINE [Concomitant]
     Active Substance: AMLODIPINE BESYLATE
     Dosage: 5 MG, QD
  6. XELEVIA [Suspect]
     Active Substance: SITAGLIPTIN PHOSPHATE
     Dosage: 100 MG, QD
  7. GLUCOBAY [Suspect]
     Active Substance: ACARBOSE
     Dosage: 50 MG, BID
  8. SIMVASTATIN. [Concomitant]
     Active Substance: SIMVASTATIN
     Dosage: 30 MG, QD

REACTIONS (3)
  - Hypoglycaemia [Unknown]
  - Fall [Unknown]
  - General physical health deterioration [Unknown]
